FAERS Safety Report 6979654-1 (Version None)
Quarter: 2010Q3

REPORT INFORMATION
  Report Type: 
  Country: None (occurrence: None)
  Receive Date: 20100910
  Receipt Date: 20100910
  Transmission Date: 20110219
  Serious: Yes (Other)
  Sender: FDA-Public Use
  Company Number: None

PATIENT
  Age: 51 Year
  Sex: Female
  Weight: 67.1324 kg

DRUGS (1)
  1. RIFAMPIN [Suspect]
     Indication: STAPHYLOCOCCAL INFECTION
     Dosage: 300 MGS X2 P.O.
     Route: 048
     Dates: start: 20100819, end: 20100821

REACTIONS (3)
  - DRUG INTOLERANCE [None]
  - OROPHARYNGEAL PAIN [None]
  - SOMNOLENCE [None]
